FAERS Safety Report 24861748 (Version 1)
Quarter: 2025Q1

REPORT INFORMATION
  Report Type: Report from Study
  Country: US (occurrence: US)
  Receive Date: 20250120
  Receipt Date: 20250120
  Transmission Date: 20250409
  Serious: Yes (Hospitalization, Other)
  Sender: SUNOVION
  Company Number: US-SMPA-2025SPA000355

PATIENT

DRUGS (2)
  1. ORGOVYX [Suspect]
     Active Substance: RELUGOLIX
     Indication: Prostate cancer
     Dosage: 120 MG, QD
     Route: 048
     Dates: start: 20220526
  2. DESMOPRESSIN [Suspect]
     Active Substance: DESMOPRESSIN
     Route: 045

REACTIONS (4)
  - Loss of consciousness [Recovering/Resolving]
  - Blood sodium decreased [Recovering/Resolving]
  - Asthenia [Recovering/Resolving]
  - Incorrect dose administered [Unknown]
